FAERS Safety Report 9202286 (Version 1)
Quarter: 2013Q2

REPORT INFORMATION
  Report Type: Report from Study
  Country: US (occurrence: US)
  Receive Date: 20130401
  Receipt Date: 20130401
  Transmission Date: 20140414
  Serious: Yes (Other)
  Sender: FDA-Public Use
  Company Number: US-BAXTER-2013BAX008212

PATIENT
  Age: 51 Year
  Sex: Male
  Weight: 86.4 kg

DRUGS (3)
  1. ARALAST NP [Suspect]
     Indication: ALPHA-1 ANTI-TRYPSIN DEFICIENCY
     Route: 042
     Dates: start: 20130225
  2. ARALAST NP [Suspect]
     Route: 042
     Dates: start: 20130305
  3. ARALAST NP [Suspect]
     Route: 042
     Dates: start: 20130313

REACTIONS (5)
  - Incorrect drug administration rate [Recovered/Resolved]
  - Dyspnoea [Recovered/Resolved]
  - Wheezing [Recovered/Resolved]
  - Somnolence [Recovered/Resolved]
  - Emotional disorder [Recovered/Resolved]
